FAERS Safety Report 7587142 (Version 4)
Quarter: 2018Q4

REPORT INFORMATION
  Report Type: Report from Study
  Country: JP (occurrence: JP)
  Receive Date: 20100915
  Receipt Date: 20181210
  Transmission Date: 20190205
  Serious: Yes (Other)
  Sender: FDA-Public Use
  Company Number: PHHY2010JP29942

PATIENT
  Age: 70 Year
  Sex: Male

DRUGS (8)
  1. TAKEPRON [Concomitant]
     Active Substance: LANSOPRAZOLE
     Indication: PROPHYLAXIS
     Dosage: 15 MG, UNK
     Route: 048
     Dates: start: 20091210
  2. TASIGNA [Suspect]
     Active Substance: NILOTINIB
     Indication: CHRONIC MYELOID LEUKAEMIA
     Dosage: 400 MG, BID
     Route: 048
     Dates: start: 20091217, end: 20100308
  3. TASIGNA [Suspect]
     Active Substance: NILOTINIB
     Dosage: 400 MG, BID
     Route: 048
     Dates: start: 20100324, end: 20100606
  4. AMLODIN [Concomitant]
     Active Substance: AMLODIPINE BESYLATE
     Indication: HYPERTENSION
     Dosage: 5 MG, UNK
     Route: 048
  5. LASIX [Concomitant]
     Active Substance: FUROSEMIDE
     Indication: PROPHYLAXIS
     Dosage: 40 MG, UNK
     Route: 048
     Dates: start: 20090717
  6. TALION [Concomitant]
     Indication: PROPHYLAXIS
     Dosage: 10 G, UNK
     Route: 048
     Dates: start: 20100324
  7. CELESTAMINE [Suspect]
     Active Substance: BETAMETHASONE\DEXCHLORPHENIRAMINE MALEATE
     Indication: PRODUCT USED FOR UNKNOWN INDICATION
     Dosage: 3 DF, UNK
     Route: 048
     Dates: start: 20091228, end: 20100308
  8. GASTROM [Concomitant]
     Active Substance: ECABET SODIUM
     Indication: PROPHYLAXIS
     Dosage: 15 MG, UNK
     Route: 048
     Dates: start: 20091210

REACTIONS (11)
  - White blood cell count decreased [Not Recovered/Not Resolved]
  - Pruritus generalised [Recovering/Resolving]
  - Red blood cell count decreased [Not Recovered/Not Resolved]
  - Haemoglobin decreased [Not Recovered/Not Resolved]
  - Infection [Not Recovered/Not Resolved]
  - Platelet count decreased [Not Recovered/Not Resolved]
  - Diabetes mellitus [Recovering/Resolving]
  - Neutrophil count decreased [Not Recovered/Not Resolved]
  - Chronic myeloid leukaemia transformation [Not Recovered/Not Resolved]
  - White blood cell count decreased [Recovered/Resolved]
  - Haematocrit decreased [Not Recovered/Not Resolved]

NARRATIVE: CASE EVENT DATE: 20091228
